FAERS Safety Report 5145612-5 (Version None)
Quarter: 2006Q4

REPORT INFORMATION
  Report Type: 
  Country: None (occurrence: None)
  Receive Date: 20061031
  Receipt Date: 20061019
  Transmission Date: 20070319
  Serious: Yes (Hospitalization)
  Sender: FDA-Public Use
  Company Number: HQWYE36022OCT06

PATIENT
  Sex: Male

DRUGS (2)
  1. PRIMATENE MIST [Suspect]
     Indication: DRUG USE FOR UNKNOWN INDICATION
     Dosage: INHALATION
     Route: 055
  2. ANTABUSE [Concomitant]

REACTIONS (3)
  - INCOHERENT [None]
  - LOSS OF CONSCIOUSNESS [None]
  - VOMITING [None]
